FAERS Safety Report 10285083 (Version 3)
Quarter: 2014Q3

REPORT INFORMATION
  Report Type: Report from Study
  Country: US (occurrence: US)
  Receive Date: 20140708
  Receipt Date: 20140721
  Transmission Date: 20150326
  Serious: Yes (Hospitalization)
  Sender: FDA-Public Use
  Company Number: US-ACTELION-A-US2013-90340

PATIENT
  Age: 45 Year
  Sex: Female

DRUGS (1)
  1. TRACLEER [Suspect]
     Active Substance: BOSENTAN\BOSENTAN MONOHYDRATE
     Indication: ARTERIOSPASM CORONARY
     Dosage: UNK
     Route: 048
     Dates: start: 20130715

REACTIONS (3)
  - Asthma [Recovering/Resolving]
  - Cardiac disorder [Unknown]
  - Dyspnoea [Unknown]
